FAERS Safety Report 18411952 (Version 1)
Quarter: 2020Q4

REPORT INFORMATION
  Report Type: Spontaneous
  Country: DE (occurrence: US)
  Receive Date: 20201021
  Receipt Date: 20201021
  Transmission Date: 20210114
  Serious: No
  Sender: FDA-Public Use
  Company Number: DE-NOVOPROD-706389

PATIENT
  Sex: Female

DRUGS (1)
  1. ESTRIFAM [Suspect]
     Active Substance: ESTRADIOL
     Indication: INFERTILITY
     Dosage: 6 MG, QD
     Route: 065

REACTIONS (6)
  - Sleep disorder [Unknown]
  - Muscular weakness [Unknown]
  - Paraesthesia [Unknown]
  - Off label use [Unknown]
  - Tremor [Unknown]
  - Dizziness [Unknown]
